FAERS Safety Report 15660487 (Version 2)
Quarter: 2019Q1

REPORT INFORMATION
  Report Type: Spontaneous
  Country: CN (occurrence: CN)
  Receive Date: 20181127
  Receipt Date: 20190104
  Transmission Date: 20190417
  Serious: Yes (Hospitalization, Other)
  Sender: FDA-Public Use
  Company Number: CN-GLAXOSMITHKLINE-CN2018GSK213509

PATIENT
  Sex: Male

DRUGS (1)
  1. SERETIDE [Suspect]
     Active Substance: FLUTICASONE PROPIONATE\SALMETEROL XINAFOATE
     Indication: CHRONIC OBSTRUCTIVE PULMONARY DISEASE
     Dosage: 1 DF, BID (PUFF(S))
     Route: 055

REACTIONS (16)
  - Productive cough [Unknown]
  - Pulmonary pain [Unknown]
  - Bronchiectasis [Unknown]
  - Osteoporosis [Unknown]
  - Mobility decreased [Unknown]
  - Pleural effusion [Unknown]
  - Diabetes mellitus [Not Recovered/Not Resolved]
  - Injury [Unknown]
  - Lung infection [Unknown]
  - Cough [Unknown]
  - Fracture [Unknown]
  - Emphysema [Unknown]
  - Hypertension [Not Recovered/Not Resolved]
  - Alveolitis [Unknown]
  - Rib fracture [Unknown]
  - Chronic obstructive pulmonary disease [Unknown]

NARRATIVE: CASE EVENT DATE: 2018
